FAERS Safety Report 9607471 (Version 1)
Quarter: 2013Q4

REPORT INFORMATION
  Report Type: Spontaneous
  Country: US (occurrence: None)
  Receive Date: 20131007
  Receipt Date: 20131007
  Transmission Date: 20140711
  Serious: Yes (Disabling)
  Sender: FDA-Public Use
  Company Number: None

PATIENT
  Age: 57 Year
  Sex: 0
  Weight: 95.26 kg

DRUGS (3)
  1. SYNTHROID [Suspect]
     Indication: HYPOTHYROIDISM
     Dosage: TAKEN BY MOUTH
     Route: 048
     Dates: start: 20130912, end: 20131002
  2. IRON [Concomitant]
  3. FOLIC ACID [Concomitant]

REACTIONS (13)
  - Eyelid oedema [None]
  - Hypothyroidism [None]
  - Eye swelling [None]
  - Malaise [None]
  - Hyperthyroidism [None]
  - Condition aggravated [None]
  - Pruritus generalised [None]
  - Tinnitus [None]
  - Tremor [None]
  - Abdominal distension [None]
  - Arthralgia [None]
  - Palpitations [None]
  - Product quality issue [None]
